FAERS Safety Report 9394784 (Version 1)
Quarter: 2013Q3

REPORT INFORMATION
  Report Type: Spontaneous
  Country: US (occurrence: None)
  Receive Date: 20130709
  Receipt Date: 20130709
  Transmission Date: 20140515
  Serious: Yes (Other)
  Sender: FDA-Public Use
  Company Number: None

PATIENT
  Age: 76 None
  Sex: Female
  Weight: 68.04 kg

DRUGS (6)
  1. COREG [Suspect]
     Indication: BLOOD PRESSURE INCREASED
     Route: 048
     Dates: start: 20130212, end: 20130212
  2. ALLOPURINOL [Concomitant]
  3. HYDROCHLOROTHIAZIDE [Concomitant]
  4. ATORVASTATIN [Concomitant]
  5. BABY ASPIRIN [Concomitant]
  6. VITAMIN C [Concomitant]

REACTIONS (1)
  - Bladder disorder [None]
